FAERS Safety Report 13720243 (Version 1)
Quarter: 2017Q3

REPORT INFORMATION
  Report Type: Other
  Country: DE (occurrence: DE)
  Receive Date: 20170706
  Receipt Date: 20170706
  Transmission Date: 20171127
  Serious: No
  Sender: FDA-Public Use
  Company Number: DE-LUPIN PHARMACEUTICALS INC.-E2B_00007006

PATIENT
  Age: 56 Year
  Sex: Male
  Weight: 80 kg

DRUGS (5)
  1. TIOBLIS 10/40 [Suspect]
     Active Substance: ATORVASTATIN CALCIUM\EZETIMIBE
     Indication: LOW DENSITY LIPOPROTEIN INCREASED
     Dosage: UNK UNK,UNK,UNKNOWN
     Route: 048
     Dates: start: 20151013, end: 20160706
  2. LOVASTATIN. [Suspect]
     Active Substance: LOVASTATIN
     Indication: LOW DENSITY LIPOPROTEIN INCREASED
     Dosage: 20 MG,UNK,UNKNOWN
     Route: 048
     Dates: start: 20160706, end: 20160815
  3. ATORVASTATIN [Suspect]
     Active Substance: ATORVASTATIN
     Indication: LOW DENSITY LIPOPROTEIN INCREASED
     Dosage: 80 MG,UNK,UNKNOWN
     Route: 048
     Dates: start: 20150615, end: 20151013
  4. PRAVASTATIN. [Suspect]
     Active Substance: PRAVASTATIN
     Indication: LOW DENSITY LIPOPROTEIN INCREASED
     Dosage: 40 MG,UNK,UNKNOWN
     Route: 048
     Dates: start: 20150529, end: 20150615
  5. SIMVASTATIN. [Suspect]
     Active Substance: SIMVASTATIN
     Indication: LOW DENSITY LIPOPROTEIN INCREASED
     Dosage: 40 MG,UNK,UNKNOWN
     Route: 048
     Dates: start: 20101217, end: 20150529

REACTIONS (2)
  - Blood creatine phosphokinase increased [Recovering/Resolving]
  - Myalgia [Recovering/Resolving]

NARRATIVE: CASE EVENT DATE: 2015
